FAERS Safety Report 7011060-6 (Version None)
Quarter: 2010Q3

REPORT INFORMATION
  Report Type: 
  Country: None (occurrence: None)
  Receive Date: 20100923
  Receipt Date: 20081021
  Transmission Date: 20110219
  Serious: No
  Sender: FDA-Public Use
  Company Number: US-WYE-H05944108

PATIENT
  Age: 62 Year
  Sex: Male
  Weight: 124.85 kg

DRUGS (12)
  1. EFFEXOR XR [Suspect]
     Indication: DEPRESSION
     Route: 048
     Dates: start: 20080801, end: 20080801
  2. EFFEXOR XR [Suspect]
     Route: 048
     Dates: start: 20080801, end: 20080801
  3. EFFEXOR XR [Suspect]
     Route: 048
     Dates: start: 20080904, end: 20080904
  4. EFFEXOR XR [Suspect]
     Dosage: ^1/2 A CAPSULE^
     Route: 048
     Dates: start: 20080905, end: 20080914
  5. LIPITOR [Concomitant]
  6. LISINOPRIL [Concomitant]
  7. XYZAL [Concomitant]
  8. DOXYCYCLINE [Concomitant]
  9. MELOXICAM [Concomitant]
  10. PREVACID [Concomitant]
  11. METFORMIN [Concomitant]
  12. SYNTHROID [Concomitant]

REACTIONS (4)
  - NASAL CONGESTION [None]
  - RESPIRATORY TRACT CONGESTION [None]
  - THROAT TIGHTNESS [None]
  - TONGUE DISORDER [None]
